FAERS Safety Report 5886340-8 (Version None)
Quarter: 2008Q3

REPORT INFORMATION
  Report Type: 
  Country: None (occurrence: None)
  Receive Date: 20080917
  Receipt Date: 20080912
  Transmission Date: 20090109
  Serious: Yes (Hospitalization)
  Sender: FDA-Public Use
  Company Number: B0536454A

PATIENT
  Age: 82 Year
  Sex: Female

DRUGS (8)
  1. VALTREX [Suspect]
     Indication: HERPES ZOSTER
     Dosage: 1000MG THREE TIMES PER DAY
     Route: 048
     Dates: start: 20080828, end: 20080831
  2. VALTREX [Suspect]
     Dosage: 500MG THREE TIMES PER DAY
     Route: 048
     Dates: start: 20080901, end: 20080902
  3. VOLTAREN [Suspect]
     Indication: PAIN
     Route: 048
  4. URSO 250 [Concomitant]
     Indication: CHOLELITHIASIS
     Route: 048
  5. PURSENNID [Concomitant]
     Indication: CONSTIPATION
     Route: 048
  6. UNKNOWN MEDICATION [Concomitant]
     Indication: HYPERTENSION
     Dosage: 20MG PER DAY
     Route: 048
  7. D-ALFA [Concomitant]
     Indication: OSTEOPOROSIS
     Route: 048
  8. CRAVIT [Concomitant]
     Indication: CYSTITIS
     Route: 048
     Dates: start: 20080826, end: 20080828

REACTIONS (5)
  - ACIDOSIS [None]
  - DECREASED APPETITE [None]
  - NAUSEA [None]
  - RENAL FAILURE ACUTE [None]
  - URINE OUTPUT DECREASED [None]
